FAERS Safety Report 10356663 (Version 2)
Quarter: 2014Q4

REPORT INFORMATION
  Report Type: Spontaneous
  Country: DE (occurrence: DE)
  Receive Date: 20140801
  Receipt Date: 20141107
  Transmission Date: 20150528
  Serious: Yes (Death, Other)
  Sender: FDA-Public Use
  Company Number: DE-JNJFOC-20140719692

PATIENT
  Age: 84 Year
  Sex: Female

DRUGS (11)
  1. RAMIPRIL. [Concomitant]
     Active Substance: RAMIPRIL
     Route: 065
  2. EUBIOL [Concomitant]
     Indication: DIARRHOEA
     Route: 065
  3. METOPROLOL [Concomitant]
     Active Substance: METOPROLOL
     Route: 065
  4. XARELTO [Suspect]
     Active Substance: RIVAROXABAN
     Indication: CEREBROVASCULAR ACCIDENT PROPHYLAXIS
     Route: 048
     Dates: start: 20140306
  5. ERYFER [Concomitant]
     Route: 065
     Dates: end: 20140214
  6. METODURA [Concomitant]
     Route: 065
  7. INSULIN [Concomitant]
     Active Substance: INSULIN NOS
     Indication: DIABETES MELLITUS
     Route: 065
  8. INSULIN RAPID [Concomitant]
     Active Substance: INSULIN NOS
     Route: 065
  9. XARELTO [Suspect]
     Active Substance: RIVAROXABAN
     Indication: ATRIAL FIBRILLATION
     Route: 048
     Dates: start: 20140306
  10. NOVALGIN [Concomitant]
     Active Substance: METAMIZOLE SODIUM
     Route: 065
  11. PANTOZOL [Concomitant]
     Active Substance: PANTOPRAZOLE SODIUM
     Route: 065

REACTIONS (3)
  - Death [Fatal]
  - Arterial thrombosis [Unknown]
  - Pulmonary embolism [Unknown]
